FAERS Safety Report 15209709 (Version 1)
Quarter: 2018Q3

REPORT INFORMATION
  Report Type: Spontaneous
  Country: US (occurrence: US)
  Receive Date: 20180727
  Receipt Date: 20180727
  Transmission Date: 20181010
  Serious: Yes (Other)
  Sender: FDA-Public Use
  Company Number: US-SA-2018SA195583

PATIENT
  Age: 64 Year
  Sex: Female

DRUGS (2)
  1. MULTAQ [Suspect]
     Active Substance: DRONEDARONE
     Indication: ATRIOVENTRICULAR BLOCK
     Dosage: 400 MG, BID
     Route: 048
  2. ELIQUIS [Concomitant]
     Active Substance: APIXABAN

REACTIONS (6)
  - Dyspnoea [Unknown]
  - Nervousness [Not Recovered/Not Resolved]
  - Neoplasm malignant [Recovered/Resolved]
  - Renal cancer [Recovered/Resolved]
  - Nasopharyngitis [Unknown]
  - Asthenia [Unknown]
